FAERS Safety Report 19821334 (Version 1)
Quarter: 2021Q3

REPORT INFORMATION
  Report Type: Other
  Country: ES (occurrence: ES)
  Receive Date: 20210913
  Receipt Date: 20210913
  Transmission Date: 20211014
  Serious: Yes (Other)
  Sender: FDA-Public Use
  Company Number: ES-ROCHE-2908286

PATIENT
  Age: 63 Year
  Sex: Female

DRUGS (4)
  1. RITUXIMAB. [Suspect]
     Active Substance: RITUXIMAB
     Indication: WALDENSTROM^S MACROGLOBULINAEMIA
     Route: 065
  2. DEXAMETHASONE. [Concomitant]
     Active Substance: DEXAMETHASONE
  3. BORTEZOMIB. [Concomitant]
     Active Substance: BORTEZOMIB
  4. IBRUTINIB [Concomitant]
     Active Substance: IBRUTINIB
     Route: 048

REACTIONS (2)
  - Blood immunoglobulin M increased [Unknown]
  - Von Willebrand^s disease [Unknown]
